FAERS Safety Report 11906631 (Version 1)
Quarter: 2016Q1

REPORT INFORMATION
  Report Type: Spontaneous
  Country: US (occurrence: US)
  Receive Date: 20160111
  Receipt Date: 20160111
  Transmission Date: 20160526
  Serious: Yes (Other)
  Sender: FDA-Public Use
  Company Number: US-AMGEN-USASP2016001149

PATIENT
  Sex: Male

DRUGS (14)
  1. LOVASTATIN. [Concomitant]
     Active Substance: LOVASTATIN
  2. LEVOTHYROXINE. [Concomitant]
     Active Substance: LEVOTHYROXINE
     Dosage: UNK
  3. ENBREL [Suspect]
     Active Substance: ETANERCEPT
     Indication: PSORIATIC ARTHROPATHY
     Dosage: 50 MG, QWK
     Route: 058
     Dates: start: 201309
  4. METHOTREXATE [Concomitant]
     Active Substance: METHOTREXATE
  5. DOXAZOSIN [Concomitant]
     Active Substance: DOXAZOSIN\DOXAZOSIN MESYLATE
     Dosage: UNK
  6. PROBIOTIC                          /06395501/ [Concomitant]
     Active Substance: BIFIDOBACTERIUM ANIMALIS SUBSP. LACTIS
  7. NIFEDIPINE. [Concomitant]
     Active Substance: NIFEDIPINE
  8. FOLIC ACID. [Concomitant]
     Active Substance: FOLIC ACID
  9. LOSARTAN. [Concomitant]
     Active Substance: LOSARTAN
  10. CIALIS [Concomitant]
     Active Substance: TADALAFIL
  11. VOLTAREN [Concomitant]
     Active Substance: DICLOFENAC SODIUM
  12. CELECOXIB. [Concomitant]
     Active Substance: CELECOXIB
  13. TRAZODONE [Concomitant]
     Active Substance: TRAZODONE HYDROCHLORIDE
  14. OMEPRAZOLE. [Concomitant]
     Active Substance: OMEPRAZOLE

REACTIONS (2)
  - Haemorrhagic diathesis [Unknown]
  - Visual impairment [Unknown]
